FAERS Safety Report 7575065-9 (Version None)
Quarter: 2011Q2

REPORT INFORMATION
  Report Type: 
  Country: None (occurrence: None)
  Receive Date: 20110627
  Receipt Date: 20110608
  Transmission Date: 20111010
  Serious: No
  Sender: FDA-Public Use
  Company Number: US-B.I. PHARMACEUTICALS,INC./RIDGEFIELD-2011-BP-13133BP

PATIENT
  Sex: Female

DRUGS (5)
  1. PRADAXA [Suspect]
     Indication: ATRIAL FIBRILLATION
     Dosage: 300 MG
     Route: 048
     Dates: start: 20110401
  2. CALCIUM + D [Concomitant]
  3. FLECAINIDE ACETATE [Concomitant]
     Indication: ATRIAL FIBRILLATION
  4. METOPROLOL TARTRATE [Concomitant]
     Indication: HYPERTENSION
  5. WARFARIN SODIUM [Concomitant]
     Dates: start: 20060801

REACTIONS (3)
  - FLATULENCE [None]
  - SENSATION OF FOREIGN BODY [None]
  - ERUCTATION [None]
